FAERS Safety Report 19198531 (Version 2)
Quarter: 2021Q3

REPORT INFORMATION
  Report Type: Spontaneous
  Country: US (occurrence: US)
  Receive Date: 20210430
  Receipt Date: 20210812
  Transmission Date: 20211014
  Serious: No
  Sender: FDA-Public Use
  Company Number: NVSC2021US097500

PATIENT
  Age: 86 Year
  Sex: Female

DRUGS (2)
  1. PROMACTA [Suspect]
     Active Substance: ELTROMBOPAG OLAMINE
     Indication: THROMBOCYTOPENIA
     Dosage: 75 MG, QD
     Route: 048
     Dates: start: 202003
  2. PROMACTA [Suspect]
     Active Substance: ELTROMBOPAG OLAMINE
     Indication: MYELODYSPLASTIC SYNDROME

REACTIONS (2)
  - Anxiety [Unknown]
  - Diarrhoea [Unknown]

NARRATIVE: CASE EVENT DATE: 202003
